FAERS Safety Report 15935924 (Version 1)
Quarter: 2019Q1

REPORT INFORMATION
  Report Type: Spontaneous
  Country: US (occurrence: US)
  Receive Date: 20190116
  Receipt Date: 20190116
  Transmission Date: 20190417
  Serious: Yes (Hospitalization)
  Sender: FDA-Public Use
  Company Number: None

PATIENT
  Age: 74 Year
  Sex: Female

DRUGS (1)
  1. INLYTA [Suspect]
     Active Substance: AXITINIB
     Indication: ADRENAL GLAND CANCER
     Route: 048
     Dates: start: 20190109

REACTIONS (4)
  - Confusional state [None]
  - Infection [None]
  - Pyrexia [None]
  - Feeling drunk [None]

NARRATIVE: CASE EVENT DATE: 20190114
